FAERS Safety Report 7570366-2 (Version None)
Quarter: 2011Q2

REPORT INFORMATION
  Report Type: 
  Country: None (occurrence: None)
  Receive Date: 20110624
  Receipt Date: 20110616
  Transmission Date: 20111010
  Serious: Yes (Hospitalization)
  Sender: FDA-Public Use
  Company Number: GB-SANOFI-AVENTIS-2011SA038521

PATIENT
  Age: 75 Year
  Sex: Male

DRUGS (6)
  1. BLINDED THERAPY [Suspect]
     Indication: PROSTATE CANCER
     Route: 048
     Dates: start: 20110215
  2. BLINDED THERAPY [Suspect]
     Route: 048
     Dates: start: 20110510
  3. PREDNISONE [Suspect]
     Indication: PROSTATE CANCER
     Dates: start: 20110215
  4. DOCETAXEL [Suspect]
     Indication: PROSTATE CANCER
     Route: 041
     Dates: start: 20110215, end: 20110215
  5. DOCETAXEL [Suspect]
     Route: 041
     Dates: start: 20110510, end: 20110510
  6. PREDNISONE [Suspect]
     Dates: start: 20110510

REACTIONS (3)
  - SYNCOPE [None]
  - PYREXIA [None]
  - FALL [None]
